FAERS Safety Report 13007928 (Version 1)
Quarter: 2016Q4

REPORT INFORMATION
  Report Type: Spontaneous
  Country: GB (occurrence: GB)
  Receive Date: 20161208
  Receipt Date: 20161208
  Transmission Date: 20170207
  Serious: Yes (Hospitalization)
  Sender: FDA-Public Use
  Company Number: GB-HETERO LABS LTD-1060553

PATIENT
  Age: 73 Year
  Sex: Male

DRUGS (6)
  1. AMLODIPINE [Concomitant]
     Active Substance: AMLODIPINE BESYLATE
  2. ESCITALOPRAM [Concomitant]
     Active Substance: ESCITALOPRAM OXALATE
  3. ZOPICLONE [Concomitant]
     Active Substance: ZOPICLONE
  4. PRAVASTATIN. [Concomitant]
     Active Substance: PRAVASTATIN
  5. PARACETAMOL [Concomitant]
     Active Substance: ACETAMINOPHEN
  6. LAMIVUDINE. [Suspect]
     Active Substance: LAMIVUDINE
     Route: 048
     Dates: start: 20141215, end: 20151118

REACTIONS (1)
  - Abdominal pain [Recovered/Resolved]
